FAERS Safety Report 7286180-1 (Version None)
Quarter: 2011Q1

REPORT INFORMATION
  Report Type: 
  Country: None (occurrence: None)
  Receive Date: 20110131
  Receipt Date: 20110117
  Transmission Date: 20110831
  Serious: Yes (Death, Disabling)
  Sender: FDA-Public Use
  Company Number: AXC-2011-000027

PATIENT
  Sex: Female

DRUGS (8)
  1. RIFAMPIN (RIFAMPICIN) [Suspect]
     Indication: CHOLESTASIS
  2. RIFAMPIN (RIFAMPICIN) [Suspect]
     Indication: PRURITUS
  3. CHOLESTYRAMINE (COLESTYRAMINE) [Suspect]
     Indication: CHOLESTASIS
  4. CHOLESTYRAMINE (COLESTYRAMINE) [Suspect]
     Indication: PRURITUS
  5. HYDROXYZINE [Suspect]
     Indication: PRURITUS
  6. HYDROXYZINE [Suspect]
     Indication: CHOLESTASIS
  7. URSODEOXYCHOLIC ACID (URSODEOXYCHOLIC ACID) UNKNOWN [Suspect]
     Indication: PRURITUS
  8. URSODEOXYCHOLIC ACID (URSODEOXYCHOLIC ACID) UNKNOWN [Suspect]
     Indication: CHOLESTASIS

REACTIONS (5)
  - PRURITUS [None]
  - CHOLESTASIS [None]
  - HEPATIC FAILURE [None]
  - DRUG INEFFECTIVE FOR UNAPPROVED INDICATION [None]
  - DISEASE PROGRESSION [None]
